FAERS Safety Report 18860847 (Version 1)
Quarter: 2021Q1

REPORT INFORMATION
  Report Type: Spontaneous
  Country: FR (occurrence: FR)
  Receive Date: 20210208
  Receipt Date: 20210208
  Transmission Date: 20210420
  Serious: Yes (Other)
  Sender: FDA-Public Use
  Company Number: NVSC2021FR028081

PATIENT
  Age: 36 Year
  Sex: Male

DRUGS (3)
  1. ANAFRANIL [Suspect]
     Active Substance: CLOMIPRAMINE HYDROCHLORIDE
     Dosage: 37.5 MG
     Route: 065
     Dates: start: 20201202
  2. ANAFRANIL [Suspect]
     Active Substance: CLOMIPRAMINE HYDROCHLORIDE
     Indication: DEPRESSION
     Dosage: REDUCED TO 25 MG ON AN UNSPECIFIED DATE. ON 02DEC2020 DOSAGE CHANGED TO 37,5 MG
     Route: 065
  3. ANAFRANIL [Suspect]
     Active Substance: CLOMIPRAMINE HYDROCHLORIDE
     Dosage: 25 MG
     Route: 065

REACTIONS (1)
  - Drug dependence [Unknown]
